FAERS Safety Report 5833327-7 (Version None)
Quarter: 2008Q3

REPORT INFORMATION
  Report Type: 
  Country: None (occurrence: None)
  Receive Date: 20080804
  Receipt Date: 20080804
  Transmission Date: 20090109
  Serious: Yes (Life-Threatening)
  Sender: FDA-Public Use
  Company Number: None

PATIENT
  Sex: Female
  Weight: 63.5036 kg

DRUGS (4)
  1. MIRAPEX [Suspect]
     Indication: PARKINSON'S DISEASE
     Dosage: 3 MG - 0.25 MG 3-4X A DAY 3X ORAL
     Route: 048
     Dates: start: 20040928
  2. SINEMET [Concomitant]
  3. GABAPENTIN [Concomitant]
  4. THYROXINE [Concomitant]

REACTIONS (1)
  - NEUROENDOCRINE CARCINOMA OF THE SKIN [None]
